FAERS Safety Report 18853293 (Version 4)
Quarter: 2021Q3

REPORT INFORMATION
  Report Type: Report from Study
  Country: CO (occurrence: CO)
  Receive Date: 20210205
  Receipt Date: 20210914
  Transmission Date: 20211014
  Serious: Yes (Hospitalization, Other)
  Sender: FDA-Public Use
  Company Number: NVSC2021CO024859

PATIENT
  Age: 52 Year
  Sex: Female
  Weight: 66 kg

DRUGS (10)
  1. GILENYA [Suspect]
     Active Substance: FINGOLIMOD HYDROCHLORIDE
     Dosage: UNK, Q3W
     Route: 048
  2. DALTEPARIN [Concomitant]
     Active Substance: DALTEPARIN
     Indication: ANTICOAGULANT THERAPY
     Dosage: 10000 UNITS (UNIT NOT REPORTED), QD
     Route: 058
     Dates: start: 202012
  3. GILENYA [Suspect]
     Active Substance: FINGOLIMOD HYDROCHLORIDE
     Indication: MULTIPLE SCLEROSIS
     Dosage: 0.5 MG, QD
     Route: 048
     Dates: start: 20150904
  4. GILENYA [Suspect]
     Active Substance: FINGOLIMOD HYDROCHLORIDE
     Dosage: UNK, Q4W
     Route: 048
  5. SERTRALINE [Concomitant]
     Active Substance: SERTRALINE HYDROCHLORIDE
     Indication: MUSCULAR WEAKNESS
     Dosage: 5 MG, QD
     Route: 048
     Dates: start: 2015
  6. ACETAMINOPHEN. [Concomitant]
     Active Substance: ACETAMINOPHEN
     Indication: PAIN
     Dosage: 1 G, PRN
     Route: 065
  7. GILENYA [Suspect]
     Active Substance: FINGOLIMOD HYDROCHLORIDE
     Dosage: 0.5 MG, QOD
     Route: 048
  8. GILENYA [Suspect]
     Active Substance: FINGOLIMOD HYDROCHLORIDE
     Dosage: UNK, QW
     Route: 048
  9. GILENYA [Suspect]
     Active Substance: FINGOLIMOD HYDROCHLORIDE
     Dosage: UNK, Q2W
     Route: 048
  10. SERTRALINE [Concomitant]
     Active Substance: SERTRALINE HYDROCHLORIDE
     Indication: MUSCLE RIGIDITY

REACTIONS (11)
  - Fluid retention [Unknown]
  - Anaemia [Unknown]
  - Inflammation [Unknown]
  - Haemorrhage [Not Recovered/Not Resolved]
  - Neoplasm malignant [Unknown]
  - Abdominal pain [Unknown]
  - Off label use [Unknown]
  - Benign ovarian tumour [Unknown]
  - Thrombosis [Unknown]
  - Blood pressure abnormal [Unknown]
  - Immunosuppression [Unknown]

NARRATIVE: CASE EVENT DATE: 202010
